FAERS Safety Report 7403026-9 (Version None)
Quarter: 2011Q2

REPORT INFORMATION
  Report Type: 
  Country: None (occurrence: None)
  Receive Date: 20110408
  Receipt Date: 20110329
  Transmission Date: 20111010
  Serious: Yes (Hospitalization)
  Sender: FDA-Public Use
  Company Number: DE-TEVA-274589GER

PATIENT
  Sex: Female

DRUGS (1)
  1. COPAXONE [Suspect]
     Indication: MULTIPLE SCLEROSIS
     Route: 058
     Dates: start: 20100924, end: 20110325

REACTIONS (4)
  - THINKING ABNORMAL [None]
  - DIZZINESS [None]
  - PALPITATIONS [None]
  - SLEEP DISORDER [None]
